FAERS Safety Report 5574950-7 (Version None)
Quarter: 2007Q4

REPORT INFORMATION
  Report Type: 
  Country: None (occurrence: None)
  Receive Date: 20071227
  Receipt Date: 20071221
  Transmission Date: 20080405
  Serious: Yes (Hospitalization, Disabling)
  Sender: FDA-Public Use
  Company Number: B0484269A

PATIENT
  Age: 32 Year
  Sex: Female
  Weight: 53 kg

DRUGS (2)
  1. VALTREX [Suspect]
     Indication: HERPES ZOSTER
     Route: 048
     Dates: start: 20070816, end: 20070818
  2. ZOVIRAX [Suspect]
     Indication: HERPES ZOSTER
     Route: 042
     Dates: start: 20070816, end: 20070818

REACTIONS (18)
  - ABDOMINAL PAIN [None]
  - ABDOMINAL SYMPTOM [None]
  - AZOTAEMIA [None]
  - BACK PAIN [None]
  - BETA 2 MICROGLOBULIN INCREASED [None]
  - BLOOD CREATININE INCREASED [None]
  - BLOOD POTASSIUM DECREASED [None]
  - BLOOD UREA INCREASED [None]
  - C-REACTIVE PROTEIN INCREASED [None]
  - FACE OEDEMA [None]
  - FEELING ABNORMAL [None]
  - HYPERPROLACTINAEMIA [None]
  - NAUSEA [None]
  - NEPHRITIS [None]
  - OEDEMA [None]
  - URINARY RETENTION [None]
  - VOMITING [None]
  - WHITE BLOOD CELL COUNT INCREASED [None]
